FAERS Safety Report 6639024-2 (Version None)
Quarter: 2010Q1

REPORT INFORMATION
  Report Type: 
  Country: None (occurrence: None)
  Receive Date: 20100317
  Receipt Date: 20100311
  Transmission Date: 20100710
  Serious: Yes (Other)
  Sender: FDA-Public Use
  Company Number: KW-B.I. PHARMACEUTICALS,INC./RIDGEFIELD-2010-DE-01593GD

PATIENT
  Age: 62 Year
  Sex: Male
  Weight: 90 kg

DRUGS (4)
  1. PERSANTINE [Suspect]
     Indication: THROMBOSIS PROPHYLAXIS
  2. ASPIRIN [Suspect]
     Indication: THROMBOSIS PROPHYLAXIS
  3. LOW-MOLECULAR WEIGHT HEPARIN [Suspect]
     Indication: THROMBOSIS PROPHYLAXIS
  4. HYDROXYUREA [Suspect]
     Indication: POLYCYTHAEMIA VERA

REACTIONS (2)
  - PLEURAL EFFUSION [None]
  - RENAL FAILURE ACUTE [None]
